FAERS Safety Report 14014784 (Version 1)
Quarter: 2017Q3

REPORT INFORMATION
  Report Type: Spontaneous
  Country: US (occurrence: None)
  Receive Date: 20170927
  Receipt Date: 20170927
  Transmission Date: 20171128
  Serious: No
  Sender: FDA-Public Use
  Company Number: None

PATIENT
  Age: 69 Year
  Sex: Female
  Weight: 62 kg

DRUGS (1)
  1. GEMCITABINE HYDROCHLORIDE. [Suspect]
     Active Substance: GEMCITABINE HYDROCHLORIDE
     Dates: end: 20170830

REACTIONS (5)
  - Vomiting [None]
  - Decreased appetite [None]
  - Nausea [None]
  - Blood potassium decreased [None]
  - Neutropenia [None]

NARRATIVE: CASE EVENT DATE: 20170912
